FAERS Safety Report 8554566-0 (Version None)
Quarter: 2012Q3

REPORT INFORMATION
  Report Type: 
  Country: None (occurrence: None)
  Receive Date: 20120731
  Receipt Date: 20120712
  Transmission Date: 20120928
  Serious: No
  Sender: FDA-Public Use
  Company Number: US-009507513-1207USA003521

PATIENT

DRUGS (2)
  1. PROPECIA [Suspect]
     Indication: ALOPECIA
     Dosage: 1 DF, QD
     Route: 048
     Dates: start: 20070101
  2. VITAMINS (UNSPECIFIED) [Concomitant]

REACTIONS (1)
  - LIBIDO INCREASED [None]
